FAERS Safety Report 10220619 (Version 1)
Quarter: 2014Q2

REPORT INFORMATION
  Report Type: Spontaneous
  Country: KR (occurrence: KR)
  Receive Date: 20140606
  Receipt Date: 20140606
  Transmission Date: 20141212
  Serious: Yes (Hospitalization)
  Sender: FDA-Public Use
  Company Number: KR-ROCHE-1412630

PATIENT
  Age: 42 Year
  Sex: Female

DRUGS (6)
  1. NAPROXEN SODIUM [Suspect]
     Indication: NASOPHARYNGITIS
     Route: 065
  2. ACAMPROSATE [Concomitant]
     Indication: ALCOHOLISM
     Route: 065
  3. METHOCARBAMOL [Concomitant]
     Indication: NASOPHARYNGITIS
     Route: 065
  4. LORAZEPAM [Concomitant]
  5. TRAZODONE [Concomitant]
  6. PAROXETINE [Concomitant]

REACTIONS (1)
  - Methaemoglobinaemia [Unknown]
